FAERS Safety Report 13254506 (Version 1)
Quarter: 2017Q1

REPORT INFORMATION
  Report Type: Report from Study
  Country: BR (occurrence: BR)
  Receive Date: 20170221
  Receipt Date: 20170221
  Transmission Date: 20170428
  Serious: Yes (Death, Hospitalization, Other)
  Sender: FDA-Public Use
  Company Number: BR-ROCHE-779374

PATIENT
  Age: 59 Year
  Sex: Female
  Weight: 68 kg

DRUGS (7)
  1. CYMBALTA [Concomitant]
     Active Substance: DULOXETINE HYDROCHLORIDE
     Route: 065
  2. CELEBRA [Concomitant]
     Active Substance: CELECOXIB
     Route: 065
  3. RITUXIMAB [Suspect]
     Active Substance: RITUXIMAB
     Indication: RHEUMATOID ARTHRITIS
     Route: 042
     Dates: start: 20090801, end: 201012
  4. RITUXIMAB [Suspect]
     Active Substance: RITUXIMAB
     Route: 042
  5. DEFLANIL [Concomitant]
     Route: 065
  6. TYLENOL [Concomitant]
     Active Substance: ACETAMINOPHEN
     Route: 065
  7. APLAUSE [Concomitant]
     Active Substance: BLACK COHOSH

REACTIONS (4)
  - Lower limb fracture [Recovered/Resolved]
  - Back pain [Not Recovered/Not Resolved]
  - Post procedural complication [Fatal]
  - Fall [Unknown]

NARRATIVE: CASE EVENT DATE: 20100510
